FAERS Safety Report 17961956 (Version 1)
Quarter: 2020Q2

REPORT INFORMATION
  Report Type: Spontaneous
  Country: US (occurrence: US)
  Receive Date: 20200629
  Receipt Date: 20200629
  Transmission Date: 20200714
  Serious: Yes (Hospitalization, Other)
  Sender: FDA-Public Use
  Company Number: US-TEVA-2020-US-1793380

PATIENT
  Age: 61 Year
  Sex: Male

DRUGS (7)
  1. OSELTAMIVIR [Concomitant]
     Active Substance: OSELTAMIVIR
  2. NITAZOXANIDE [Suspect]
     Active Substance: NITAZOXANIDE
     Indication: COVID-19 PNEUMONIA
     Dosage: 1000 MILLIGRAM DAILY;
     Route: 065
  3. LOPINAVIR/RITONAVIR [Interacting]
     Active Substance: LOPINAVIR\RITONAVIR
     Indication: COVID-19 PNEUMONIA
     Dosage: LOPINAVIR 400MG/ RITONAVIR 100MG EVERY 12 HRS SCHEDULED FOR 7 DAYS
     Route: 065
  4. PREDNISONE. [Suspect]
     Active Substance: PREDNISONE
     Indication: IMMUNOSUPPRESSANT DRUG THERAPY
     Dosage: 5 MILLIGRAM DAILY;
     Route: 065
  5. MYCOPHENOLATE [Suspect]
     Active Substance: MYCOPHENOLIC ACID
     Indication: IMMUNOSUPPRESSANT DRUG THERAPY
     Route: 065
  6. TACROLIMUS. [Interacting]
     Active Substance: TACROLIMUS
     Indication: IMMUNOSUPPRESSANT DRUG THERAPY
     Dosage: AT GOAL LEVEL OF 8 NG/ML; LATER DECREASED TO A LOWER GOAL LEVEL OF 6-8 NG/ML
     Route: 065
  7. IMMUNOGLOBULIN (IMMUNOGLOBULIN NOS) [Suspect]
     Active Substance: IMMUNE GLOBULIN NOS
     Indication: COVID-19 PNEUMONIA
     Dosage: 40 GRAM DAILY;
     Route: 042

REACTIONS (8)
  - COVID-19 pneumonia [Recovering/Resolving]
  - Pancreatitis [Unknown]
  - Influenza [Unknown]
  - Drug interaction [Unknown]
  - Off label use [Unknown]
  - Leukopenia [Unknown]
  - BK virus infection [Unknown]
  - Drug clearance decreased [Unknown]
